FAERS Safety Report 16805928 (Version 1)
Quarter: 2019Q3

REPORT INFORMATION
  Report Type: Spontaneous
  Country: CA (occurrence: CA)
  Receive Date: 20190913
  Receipt Date: 20190913
  Transmission Date: 20191005
  Serious: Yes (Other)
  Sender: FDA-Public Use
  Company Number: CA-SHIRE-CA201929642

PATIENT

DRUGS (1)
  1. MEZAVANT [Suspect]
     Active Substance: MESALAMINE
     Indication: PRODUCT USED FOR UNKNOWN INDICATION
     Dosage: UNK UNK, 1X/DAY:QD
     Route: 048

REACTIONS (3)
  - Drug ineffective [Unknown]
  - Gastritis erosive [Unknown]
  - Off label use [Unknown]
